FAERS Safety Report 9370057 (Version 2)
Quarter: 2013Q2

REPORT INFORMATION
  Report Type: Spontaneous
  Country: US (occurrence: None)
  Receive Date: 20130621
  Receipt Date: 20130625
  Transmission Date: 20140414
  Serious: Yes (Hospitalization)
  Sender: FDA-Public Use
  Company Number: FK201302121

PATIENT
  Age: 68 Year
  Sex: Female

DRUGS (1)
  1. METHOTREXATE (MANUFACTURER UNKNOWN) (METHOTREXATE) (METHOTREXATE) [Suspect]
     Indication: RHEUMATOID ARTHRITIS
     Dosage: 7.5MG, 1 IN 1 WK, ORAL
     Route: 048

REACTIONS (10)
  - Medication error [None]
  - Pancytopenia [None]
  - Inappropriate schedule of drug administration [None]
  - Lip erosion [None]
  - Mouth ulceration [None]
  - Oral pain [None]
  - Dysphagia [None]
  - Dehydration [None]
  - Renal failure acute [None]
  - Drug level increased [None]
